FAERS Safety Report 5200297-4 (Version None)
Quarter: 2007Q1

REPORT INFORMATION
  Report Type: 
  Country: None (occurrence: None)
  Receive Date: 20070105
  Receipt Date: 20061227
  Transmission Date: 20070707
  Serious: Yes (Life-Threatening, Hospitalization, Other)
  Sender: FDA-Public Use
  Company Number: CA-PFIZER INC-2006144442

PATIENT
  Sex: Male
  Weight: 99.8 kg

DRUGS (8)
  1. LYRICA [Suspect]
     Indication: PAIN
     Route: 048
     Dates: start: 20061031, end: 20061119
  2. CELEXA [Concomitant]
     Route: 048
  3. ELAVIL [Concomitant]
     Route: 048
  4. DURAGESIC-100 [Concomitant]
     Route: 062
  5. VALIUM [Concomitant]
     Route: 048
  6. MORPHINE [Concomitant]
     Route: 048
  7. ATIVAN [Concomitant]
     Route: 048
  8. CLONAZEPAM [Concomitant]
     Route: 048
     Dates: end: 20061101

REACTIONS (7)
  - ABNORMAL BEHAVIOUR [None]
  - AGITATION [None]
  - DELIRIUM [None]
  - HOMICIDAL IDEATION [None]
  - IMPULSIVE BEHAVIOUR [None]
  - PARANOIA [None]
  - SUICIDAL IDEATION [None]
